FAERS Safety Report 19325942 (Version 1)
Quarter: 2021Q2

REPORT INFORMATION
  Report Type: Spontaneous
  Country: JP (occurrence: JP)
  Receive Date: 20210528
  Receipt Date: 20210528
  Transmission Date: 20210717
  Serious: Yes (Death, Other)
  Sender: FDA-Public Use
  Company Number: JP-ANIPHARMA-2021-JP-000234

PATIENT
  Age: 83 Year
  Sex: Female

DRUGS (14)
  1. DARBEPOETIN ALFA [Concomitant]
     Active Substance: DARBEPOETIN ALFA
     Route: 065
  2. EVRENZO [Suspect]
     Active Substance: ROXADUSTAT
     Dosage: 50 MG UNK / 100 MG TIWK
     Route: 048
     Dates: start: 20210407
  3. TRIAZOLAM. [Concomitant]
     Active Substance: TRIAZOLAM
     Route: 065
  4. ALLIUM SATIVUM, ASCORBIC ACID, CALCIUM PANTOTHENATE, CYANOCOBALAMIN, N [Concomitant]
     Route: 065
  5. EZETIMIBE. [Concomitant]
     Active Substance: EZETIMIBE
     Route: 065
  6. CANDESARTAN CILEXETIL. [Suspect]
     Active Substance: CANDESARTAN CILEXETIL
     Indication: PRODUCT USED FOR UNKNOWN INDICATION
     Dosage: 8 MG/DAY, UNKNOWN FREQ.
     Route: 048
  7. TRAMAL [Concomitant]
     Active Substance: TRAMADOL
     Route: 065
  8. ALLOPURINOL. [Suspect]
     Active Substance: ALLOPURINOL
     Dosage: 100 MG/DAY, UNKNOWN FREQ
     Route: 048
  9. FUROSEMIDE. [Suspect]
     Active Substance: FUROSEMIDE
     Dosage: 40 MG/DAY, UNKNOWN FREQ.
     Route: 048
  10. CARVEDILOL. [Suspect]
     Active Substance: CARVEDILOL
     Dosage: 10 MG/DAY, UNKNOWN FREQ
     Route: 048
  11. TAKECAB [Concomitant]
     Active Substance: VONOPRAZAN FUMARATE
     Route: 065
  12. AMLODIPINE [Suspect]
     Active Substance: AMLODIPINE BESYLATE
     Dosage: 10 MG/DAY, UNKNOWN FREQ
     Route: 048
  13. KETOPROFEN. [Concomitant]
     Active Substance: KETOPROFEN
     Route: 065
  14. ALFACALCIDOL [Concomitant]
     Active Substance: ALFACALCIDOL
     Route: 065

REACTIONS (1)
  - Death [Fatal]

NARRATIVE: CASE EVENT DATE: 20210520
